FAERS Safety Report 20837151 (Version 1)
Quarter: 2022Q2

REPORT INFORMATION
  Report Type: Spontaneous
  Country: US (occurrence: US)
  Receive Date: 20220517
  Receipt Date: 20220517
  Transmission Date: 20220721
  Serious: No
  Sender: FDA-Public Use
  Company Number: US-BRISTOL-MYERS SQUIBB COMPANY-2022-025182

PATIENT
  Age: 60 Year
  Sex: Female

DRUGS (5)
  1. REVLIMID [Suspect]
     Active Substance: LENALIDOMIDE
     Indication: Plasma cell myeloma
     Route: 048
  2. BACLOFEN LORATADINE [Concomitant]
     Indication: Product used for unknown indication
  3. ZOLPIDEM TARTRATETRAMADOL HYDROCHLORIDE [Concomitant]
     Indication: Product used for unknown indication
  4. GABAPENTIN ABILIFY MYCITE [Concomitant]
     Indication: Product used for unknown indication
  5. HYDROCHLOROTHIAZIDE OMEPRAZOLE [Concomitant]
     Indication: Product used for unknown indication

REACTIONS (1)
  - Product dose omission issue [Unknown]
